FAERS Safety Report 25140278 (Version 1)
Quarter: 2025Q1

REPORT INFORMATION
  Report Type: Spontaneous
  Country: US (occurrence: None)
  Receive Date: 20250328
  Receipt Date: 20250328
  Transmission Date: 20250408
  Serious: Yes (Hospitalization, Other)
  Sender: FDA-CTU
  Company Number: None

PATIENT
  Age: 38 Year
  Sex: Male
  Weight: 76.5 kg

DRUGS (1)
  1. LUMATEPERONE [Suspect]
     Active Substance: LUMATEPERONE

REACTIONS (4)
  - Eye movement disorder [None]
  - Tachycardia [None]
  - Insomnia [None]
  - Retinal disorder [None]

NARRATIVE: CASE EVENT DATE: 20250205
